FAERS Safety Report 4738530-5 (Version None)
Quarter: 2005Q3

REPORT INFORMATION
  Report Type: 
  Country: None (occurrence: None)
  Receive Date: 20050809
  Receipt Date: 20050708
  Transmission Date: 20060218
  Serious: Yes (Hospitalization)
  Sender: FDA-Public Use
  Company Number: PHRM2005FR02061

PATIENT
  Age: 50 Year
  Sex: Male
  Weight: 88 kg

DRUGS (3)
  1. LAMISIL [Suspect]
     Indication: NAIL TINEA
  2. LOGIMAX [Suspect]
     Indication: ESSENTIAL HYPERTENSION
     Dosage: 1 DF, QD
     Route: 048
     Dates: end: 20050701
  3. COAPROVEL [Suspect]
     Indication: ESSENTIAL HYPERTENSION
     Dosage: 300 MG, QD
     Route: 048
     Dates: end: 20050701

REACTIONS (6)
  - DIVERTICULITIS [None]
  - ESCHERICHIA SEPSIS [None]
  - MORGANELLA INFECTION [None]
  - SEPTIC SHOCK [None]
  - SURGERY [None]
  - THROMBOCYTOPENIA [None]
